FAERS Safety Report 11309096 (Version 2)
Quarter: 2015Q3

REPORT INFORMATION
  Report Type: Spontaneous
  Country: DE (occurrence: DE)
  Receive Date: 20150724
  Receipt Date: 20150813
  Transmission Date: 20151125
  Serious: Yes (Hospitalization, Disabling, Other)
  Sender: FDA-Public Use
  Company Number: DE-SA-2015SA106068

PATIENT
  Age: 48 Year
  Sex: Male
  Weight: 72 kg

DRUGS (10)
  1. MITOXANTRONE [Concomitant]
     Active Substance: MITOXANTRONE HYDROCHLORIDE
     Dates: end: 2014
  2. ASPIRIN. [Concomitant]
     Active Substance: ASPIRIN
     Dates: start: 201403
  3. ATORVASTATIN [Concomitant]
     Active Substance: ATORVASTATIN
     Dates: start: 201403
  4. VIGIL [Concomitant]
     Active Substance: MODAFINIL
  5. RAMIPRIL. [Concomitant]
     Active Substance: RAMIPRIL
     Dates: start: 201403
  6. FAMPRIDINE [Concomitant]
     Active Substance: DALFAMPRIDINE
     Dates: end: 2014
  7. MIRTAZAPINE. [Concomitant]
     Active Substance: MIRTAZAPINE
  8. MIRTAZAPINE. [Concomitant]
     Active Substance: MIRTAZAPINE
  9. TOLPERISONE [Concomitant]
     Active Substance: TOLPERISONE
  10. AUBAGIO [Suspect]
     Active Substance: TERIFLUNOMIDE
     Indication: MULTIPLE SCLEROSIS
     Route: 048
     Dates: start: 20140901, end: 20150619

REACTIONS (14)
  - Asthenia [Recovering/Resolving]
  - Cerebral ischaemia [Recovering/Resolving]
  - Mobility decreased [Recovering/Resolving]
  - Fall [Recovering/Resolving]
  - Cardiomyopathy [Recovered/Resolved with Sequelae]
  - Dyspnoea [Recovered/Resolved]
  - Intracardiac thrombus [Recovering/Resolving]
  - Cerebrovascular accident [Recovering/Resolving]
  - Vitamin D deficiency [Recovering/Resolving]
  - Coordination abnormal [Recovering/Resolving]
  - Cardiac failure [Unknown]
  - Gait disturbance [Recovering/Resolving]
  - Fatigue [Recovering/Resolving]
  - Quadriparesis [Recovering/Resolving]

NARRATIVE: CASE EVENT DATE: 2015
